FAERS Safety Report 17197355 (Version 2)
Quarter: 2020Q1

REPORT INFORMATION
  Report Type: Spontaneous
  Country: US (occurrence: US)
  Receive Date: 20191224
  Receipt Date: 20200213
  Transmission Date: 20200409
  Serious: Yes (Other)
  Sender: FDA-Public Use
  Company Number: US-MALLINCKRODT-T201908914

PATIENT
  Sex: Female
  Weight: 50 kg

DRUGS (3)
  1. CIMZIA [Suspect]
     Active Substance: CERTOLIZUMAB PEGOL
     Indication: RHEUMATOID ARTHRITIS
     Dosage: 200 MILLIGRAM (1 SYRINGE) EVERY TWO WEEKS
     Route: 058
     Dates: start: 201903
  2. H.P. ACTHAR [Suspect]
     Active Substance: CORTICOTROPIN
     Indication: RHEUMATOID ARTHRITIS
     Dosage: 1 MILLILITER, TWICE A WEEK
     Route: 058
     Dates: start: 201908
  3. H.P. ACTHAR [Suspect]
     Active Substance: CORTICOTROPIN
     Dosage: 80 UNITS (1ML), TWO TIMES A WEEK
     Route: 058
     Dates: start: 201909

REACTIONS (3)
  - Gastrointestinal disorder [Unknown]
  - Gastrointestinal surgery [Unknown]
  - Nasopharyngitis [Unknown]

NARRATIVE: CASE EVENT DATE: 2019
